FAERS Safety Report 14568601 (Version 1)
Quarter: 2018Q1

REPORT INFORMATION
  Report Type: Spontaneous
  Country: US (occurrence: US)
  Receive Date: 20180216
  Receipt Date: 20180216
  Transmission Date: 20180509
  Serious: Yes (Hospitalization, Other)
  Sender: FDA-Public Use
  Company Number: None

PATIENT
  Age: 73 Year
  Sex: Female

DRUGS (9)
  1. CLOPIDOGREL [Concomitant]
     Active Substance: CLOPIDOGREL BISULFATE
  2. FUROSEMIDE 20MG [Concomitant]
     Active Substance: FUROSEMIDE
  3. COSENTYX [Suspect]
     Active Substance: SECUKINUMAB
     Indication: PSORIASIS
     Dosage: ?          OTHER FREQUENCY:EVERY 4 WEEKS;?
     Route: 058
     Dates: start: 20170206
  4. ATORVASTATIN 80MG [Concomitant]
     Active Substance: ATORVASTATIN
  5. AMLODIPINE [Concomitant]
     Active Substance: AMLODIPINE BESYLATE
  6. ASPIRIN 81MG [Concomitant]
     Active Substance: ASPIRIN
  7. VALSARTAN 80MG [Concomitant]
     Active Substance: VALSARTAN
  8. PREDNISONE 5MG [Concomitant]
     Active Substance: PREDNISONE
  9. METOPROLOL SUCCINATE 25MG [Concomitant]
     Active Substance: METOPROLOL SUCCINATE

REACTIONS (1)
  - Myocardial infarction [None]

NARRATIVE: CASE EVENT DATE: 20180115
